FAERS Safety Report 9951610 (Version 1)
Quarter: 2014Q1

REPORT INFORMATION
  Report Type: Report from Study
  Country: US (occurrence: US)
  Receive Date: 20140304
  Receipt Date: 20140304
  Transmission Date: 20141002
  Serious: Yes (Hospitalization)
  Sender: FDA-Public Use
  Company Number: US-ABBVIE-13P-163-1072513-00

PATIENT
  Age: 64 Year
  Sex: Male

DRUGS (2)
  1. HUMIRA [Suspect]
     Indication: RHEUMATOID ARTHRITIS
     Dates: start: 20121126, end: 20130318
  2. FOLIC ACID [Concomitant]
     Indication: PRODUCT USED FOR UNKNOWN INDICATION

REACTIONS (7)
  - Pleural effusion [Recovering/Resolving]
  - Renal pain [Recovering/Resolving]
  - Nasopharyngitis [Recovering/Resolving]
  - Pneumonia [Recovering/Resolving]
  - Blood viscosity increased [Unknown]
  - Chest pain [Recovering/Resolving]
  - Angina pectoris [Recovering/Resolving]
